FAERS Safety Report 5943119-6 (Version None)
Quarter: 2008Q4

REPORT INFORMATION
  Report Type: 
  Country: None (occurrence: None)
  Receive Date: 20081106
  Receipt Date: 20081027
  Transmission Date: 20090506
  Serious: Yes (Hospitalization)
  Sender: FDA-Public Use
  Company Number: FR-CELGENEUS-056-20785-08091517

PATIENT
  Sex: Male
  Weight: 65 kg

DRUGS (6)
  1. THALIDOMIDE [Suspect]
     Indication: MULTIPLE MYELOMA
     Route: 048
     Dates: start: 20080909, end: 20080924
  2. THALIDOMIDE [Suspect]
     Route: 048
     Dates: start: 20081010
  3. VELCADE [Suspect]
     Indication: MULTIPLE MYELOMA
     Route: 051
     Dates: start: 20080909, end: 20080919
  4. DEXAMETHASONE [Suspect]
     Indication: MULTIPLE MYELOMA
     Route: 048
     Dates: start: 20080909, end: 20080912
  5. MORPHINE SULFATE INJ [Concomitant]
     Indication: PAIN
     Route: 048
     Dates: start: 20080806
  6. LEVOTHYROX [Concomitant]
     Indication: DRUG USE FOR UNKNOWN INDICATION
     Route: 065

REACTIONS (3)
  - ACUTE RESPIRATORY FAILURE [None]
  - ATRIAL FLUTTER [None]
  - BRONCHOPNEUMONIA [None]
